FAERS Safety Report 6922559-2 (Version None)
Quarter: 2010Q3

REPORT INFORMATION
  Report Type: 
  Country: None (occurrence: None)
  Receive Date: 20100813
  Receipt Date: 20100730
  Transmission Date: 20110219
  Serious: Yes (Hospitalization)
  Sender: FDA-Public Use
  Company Number: US-ELI_LILLY_AND_COMPANY-US201008001356

PATIENT
  Age: 78 Year
  Sex: Female

DRUGS (13)
  1. FORTEO [Suspect]
     Indication: OSTEOPOROSIS
     Dosage: 20 UG, DAILY (1/D)
  2. HUMALOG [Concomitant]
  3. HUMULIN N [Concomitant]
  4. PROTONIX [Concomitant]
  5. CLARITIN [Concomitant]
  6. NEURONTIN [Concomitant]
  7. POTASSIUM [Concomitant]
  8. LISINOPRIL [Concomitant]
  9. FUROSEMIDE [Concomitant]
  10. PLAVIX [Concomitant]
  11. ALBUTEROL [Concomitant]
  12. VERAPAMIL HCL [Concomitant]
  13. NAZONEX [Concomitant]

REACTIONS (5)
  - CHOLELITHIASIS [None]
  - DRUG DOSE OMISSION [None]
  - DYSPNOEA [None]
  - HIATUS HERNIA [None]
  - PAIN [None]
